FAERS Safety Report 6645613-1 (Version None)
Quarter: 2010Q1

REPORT INFORMATION
  Report Type: 
  Country: None (occurrence: None)
  Receive Date: 20100323
  Receipt Date: 20100309
  Transmission Date: 20100710
  Serious: Yes (Other)
  Sender: FDA-Public Use
  Company Number: US-CELGENEUS-163-21880-10031209

PATIENT
  Sex: Female

DRUGS (2)
  1. REVLIMID [Suspect]
     Indication: MULTIPLE MYELOMA
     Route: 048
     Dates: start: 20091101
  2. REVLIMID [Suspect]
     Route: 048
     Dates: start: 20091001

REACTIONS (4)
  - HAEMORRHAGE [None]
  - MEMORY IMPAIRMENT [None]
  - THROMBOCYTOPENIA [None]
  - TREATMENT NONCOMPLIANCE [None]
